FAERS Safety Report 6295093-3 (Version None)
Quarter: 2009Q3

REPORT INFORMATION
  Report Type: 
  Country: None (occurrence: None)
  Receive Date: 20090731
  Receipt Date: 20090731
  Transmission Date: 20100115
  Serious: No
  Sender: FDA-Public Use
  Company Number: None

PATIENT
  Age: 69 Year
  Sex: Female

DRUGS (3)
  1. SINEMET [Suspect]
     Indication: PARKINSON'S DISEASE
     Dosage: 1/2 TAB 7 TIMES PER DAY PO
     Route: 048
  2. SINEMET CR [Suspect]
     Dosage: 1 TAB 7 TIMES PER DAY PO
     Route: 048
  3. MIRAPEX [Concomitant]

REACTIONS (3)
  - BRADYKINESIA [None]
  - PRODUCT QUALITY ISSUE [None]
  - TREMOR [None]
